FAERS Safety Report 18977943 (Version 5)
Quarter: 2021Q2

REPORT INFORMATION
  Report Type: Spontaneous
  Country: DE (occurrence: CA)
  Receive Date: 20210307
  Receipt Date: 20210501
  Transmission Date: 20210717
  Serious: Yes (Death, Other)
  Sender: FDA-Public Use
  Company Number: DE-TEVA-2021-DE-1886060

PATIENT
  Age: 80 Year
  Sex: Male
  Weight: 69 kg

DRUGS (49)
  1. ALLOPURINOL. [Suspect]
     Active Substance: ALLOPURINOL
     Indication: BLOOD URIC ACID INCREASED
     Dosage: 1 DOSAGE FORMS DAILY; THERAPY START DATE ASKU, THERAPY END DATE ASKU
     Route: 048
  2. VASOPRESSIN. [Suspect]
     Active Substance: VASOPRESSIN
     Indication: DRUG THERAPY
     Dosage: THERAPY START DATE ASKU, THERAPY END DATE ASKU
     Route: 042
  3. MELATONIN [Suspect]
     Active Substance: MELATONIN
     Indication: SLEEP DISORDER THERAPY
     Dosage: 3 MILLIGRAM DAILY; THERAPY START DATE ASKU, THERAPY END DATE ASKU
     Route: 048
  4. SODIUM FERRIC GLUCONATE COMPLEX IN SUCROSE INJECTION [Suspect]
     Active Substance: SODIUM FERRIC GLUCONATE COMPLEX
     Indication: IRON DEFICIENCY
     Route: 042
  5. DOBUTAMINE [Suspect]
     Active Substance: DOBUTAMINE HYDROCHLORIDE
     Indication: CARDIOGENIC SHOCK
     Dosage: THERAPY START DATE ASKU, THERAPY END DATE ASKU
     Route: 042
  6. PHYTONADIONE. [Suspect]
     Active Substance: PHYTONADIONE
     Indication: VITAMIN SUPPLEMENTATION
     Dosage: 5 MG, PRN,THERAPY START DATE ASKU, THERAPY END DATE ASKU
     Route: 042
  7. GLUCOSE [Suspect]
     Active Substance: DEXTROSE
     Indication: NUTRITIONAL SUPPLEMENTATION
     Dosage: 12.5 G, PRN,THERAPY START DATE ASKU, THERAPY END DATE ASKU
     Route: 042
  8. ACETAMINOPHEN. [Suspect]
     Active Substance: ACETAMINOPHEN
     Indication: ANALGESIC THERAPY
     Dosage: 650 MILLIGRAM DAILY;
     Route: 048
  9. GABAPENTIN. [Suspect]
     Active Substance: GABAPENTIN
     Indication: NEURALGIA
     Dosage: 100 MILLIGRAM DAILY; THERAPY START DATE ASKU, THERAPY END DATE ASKU
     Route: 048
  10. LANSOPRAZOLE. [Suspect]
     Active Substance: LANSOPRAZOLE
     Indication: ANTACID THERAPY
     Dosage: 30 MILLIGRAM DAILY; THERAPY START DATE ASKU, THERAPY END DATE ASKU
     Route: 048
  11. ATROVENT [Suspect]
     Active Substance: IPRATROPIUM BROMIDE
     Indication: DYSPNOEA
     Dosage: UNK UNK, QID,THERAPY START DATE ASKU, THERAPY END DATE ASKU
     Route: 055
  12. BETAMETHASONE. [Suspect]
     Active Substance: BETAMETHASONE
     Indication: SWELLING
     Dosage: UNK UNK, PRN,THERAPY START DATE ASKU, THERAPY END DATE ASKU
     Route: 061
  13. INSULIN ASPART [Suspect]
     Active Substance: INSULIN ASPART
     Indication: DIABETES MELLITUS
     Dosage: THERAPY START DATE ASKU, THERAPY END DATE ASKU
     Route: 058
  14. CALCITRIOL. [Suspect]
     Active Substance: CALCITRIOL
     Indication: VITAMIN D
     Dosage: .25 MICROGRAM DAILY; THERAPY START DATE ASKU, THERAPY END DATE ASKU
     Route: 048
  15. HEPARIN SODIUM. [Suspect]
     Active Substance: HEPARIN SODIUM
     Dosage: 250 ML,THERAPY START DATE ASKU, THERAPY END DATE ASKU
     Route: 042
  16. ONDANSETRON [Suspect]
     Active Substance: ONDANSETRON
     Indication: NAUSEA
     Dosage: 36 MILLIGRAM DAILY; THERAPY START DATE ASKU, THERAPY END DATE ASKU
     Route: 042
  17. SODIUM PHOSPHATE MONOBASIC [Suspect]
     Active Substance: SODIUM PHOSPHATE, MONOBASIC
     Indication: CONSTIPATION
     Dosage: 133 ML, PRN,THERAPY START DATE ASKU, THERAPY END DATE ASKU
     Route: 054
  18. PARACETAMOL [Suspect]
     Active Substance: ACETAMINOPHEN
     Indication: ANALGESIC THERAPY
     Dosage: 650 MILLIGRAM DAILY; THERAPY START DATE ASKU, THERAPY END DATE ASKU
     Route: 048
  19. SALBUTAN [SALBUTAMOL] [Suspect]
     Active Substance: ALBUTEROL
     Indication: CHRONIC OBSTRUCTIVE PULMONARY DISEASE
     Dosage: UNK , QID,THERAPY START DATE ASKU, THERAPY END DATE ASKU
     Route: 055
  20. DALTEPARIN SODIUM [Suspect]
     Active Substance: DALTEPARIN SODIUM
     Indication: PULMONARY EMBOLISM
     Dosage: THERAPY START DATE ASKU, THERAPY END DATE ASKU
     Route: 065
  21. NOREPINEPHRINE. [Suspect]
     Active Substance: NOREPINEPHRINE
     Indication: STRESS
     Dosage: THERAPY START DATE ASKU, THERAPY END DATE ASKU
     Route: 042
  22. BETACAROTENE/CITRIC ACID/DEXTROSE/MALTOSE/MANNITOL/POLYETHYLENE GLYCOL [ELECTROLYTES NOS] [Suspect]
     Active Substance: ELECTROLYTES NOS
     Indication: NUTRITIONAL SUPPLEMENTATION
     Dosage: THERAPY START DATE ASKU, THERAPY END DATE ASKU, 12.5GM
     Route: 042
  23. AMIODARONE HYDROCHLORIDE. [Suspect]
     Active Substance: AMIODARONE HYDROCHLORIDE
     Indication: VENTRICULAR FIBRILLATION
     Dosage: 150 MILLIGRAM DAILY; THERAPY START DATE ASKU, THERAPY END DATE ASKU
     Route: 042
  24. CEFTRIAXONE. [Suspect]
     Active Substance: CEFTRIAXONE
     Indication: BACTERIAL INFECTION
     Dosage: 2 GRAM DAILY; THERAPY START DATE ASKU, THERAPY END DATE ASKU
     Route: 042
  25. HEPARIN SODIUM. [Suspect]
     Active Substance: HEPARIN SODIUM
     Indication: ANTICOAGULANT THERAPY
     Dosage: 50 ML, PRN,THERAPY START DATE ASKU, THERAPY END DATE ASKU
     Route: 065
  26. ONDANSETRON [Suspect]
     Active Substance: ONDANSETRON
     Indication: VOMITING
  27. PYRIDOXINE HYDROCHLORIDE. [Suspect]
     Active Substance: PYRIDOXINE HYDROCHLORIDE
     Indication: VITAMIN SUPPLEMENTATION
     Dosage: THERAPY START DATE ASKU, THERAPY END DATE ASKU
     Route: 048
  28. INSULIN DEGLUDEC [Suspect]
     Active Substance: INSULIN DEGLUDEC
     Indication: DIABETES MELLITUS
     Dosage: THERAPY START DATE ASKU, THERAPY END DATE ASKU
     Route: 058
  29. WARFARIN [Suspect]
     Active Substance: WARFARIN
     Indication: THROMBOSIS
     Dosage: 2 GRAM DAILY; THERAPY START DATE ASKU, THERAPY END DATE ASKU
     Route: 048
  30. METRONIDAZOLE. [Suspect]
     Active Substance: METRONIDAZOLE
     Indication: BACTERIAL INFECTION
     Dosage: 1500 MILLIGRAM DAILY; THERAPY START DATE ASKU, THERAPY END DATE ASKU
     Route: 048
  31. ASCORBIC ACID;MACROGOL 3350;POTASSIUM CHLORIDE;SODIUM ASCORBATE;SODIUM [Suspect]
     Active Substance: ASCORBIC ACID\POLYETHYLENE GLYCOL 3350\POTASSIUM CHLORIDE\SODIUM ASCORBATE\SODIUM CHLORIDE\SODIUM SULFATE
     Indication: CONSTIPATION
     Dosage: 17 GRAM DAILY; THERAPY START DATE ASKU, THERAPY END DATE ASKU
     Route: 048
  32. UMECLIDINIUM BROMIDE;VILANTEROL TRIFENATATE [Suspect]
     Active Substance: UMECLIDINIUM BROMIDE\VILANTEROL TRIFENATATE
     Indication: DYSPNOEA
     Dosage: THERAPY START DATE ASKU, THERAPY END DATE ASKU,1 IU
     Route: 048
  33. MACROGOL 3350 [Suspect]
     Active Substance: POLYETHYLENE GLYCOL 3350
     Indication: CONSTIPATION
     Dosage: 17 GRAM DAILY; THERAPY START DATE ASKU, THERAPY END DATE ASKU
     Route: 048
  34. SIMVASTATIN. [Suspect]
     Active Substance: SIMVASTATIN
     Indication: BLOOD CHOLESTEROL INCREASED
     Dosage: 40 MILLIGRAM DAILY; THERAPY START DATE ASKU, THERAPY END DATE ASKU
     Route: 048
  35. DULCOLAX NOS [Suspect]
     Active Substance: BISACODYL OR DOCUSATE SODIUM
     Indication: CONSTIPATION
     Dosage: 10 MG, PRN,THERAPY START DATE ASKU, THERAPY END DATE ASKU
     Route: 054
  36. DISTIGMINE BROMIDE [Suspect]
     Active Substance: DISTIGMINE BROMIDE
     Indication: DYSPNOEA
     Dosage: 1 IU (INTERNATIONAL UNIT) DAILY; THERAPY START DATE ASKU, THERAPY END DATE ASKU
     Route: 048
  37. SODIUM PICOSULFATE [Suspect]
     Active Substance: SODIUM PICOSULFATE
     Indication: CONSTIPATION
     Dosage: 10 MILLIGRAM, PRN ,THERAPY START DATE ASKU, THERAPY END DATE ASKU
     Route: 054
  38. BISACODYL. [Suspect]
     Active Substance: BISACODYL
     Indication: CONSTIPATION
     Route: 065
  39. SODIUM CITRATE. [Suspect]
     Active Substance: SODIUM CITRATE
     Indication: THROMBOSIS
     Dosage: 2.5 ML, PRN (4GM/100ML SOLUTION UNASSIGNED),THERAPY START DATE ASKU, THERAPY END DATE ASKU
     Route: 065
  40. FLUTICASONE FUROATE/VILANTEROL TRIFENATATE [Suspect]
     Active Substance: FLUTICASONE FUROATE\VILANTEROL TRIFENATATE
     Dosage: THERAPY START DATE ASKU, THERAPY END DATE ASKU
     Route: 065
  41. 50% DEXTROSE INJECTION, USP [Suspect]
     Active Substance: DEXTROSE
     Indication: NUTRITIONAL SUPPLEMENTATION
     Route: 042
  42. ANTICOAGULANT SODIUM CITRATE SOLUTION [Suspect]
     Active Substance: TRISODIUM CITRATE DIHYDRATE
     Indication: THROMBOSIS
     Route: 065
  43. HYDROMORPHONE [Suspect]
     Active Substance: HYDROMORPHONE
     Indication: ANALGESIC THERAPY
     Dosage: 24 MILLIGRAM DAILY; THERAPY START DATE ASKU, THERAPY END DATE ASKU
     Route: 058
  44. SODIUM FERRIC GLUCONATE COMPLEX. [Suspect]
     Active Substance: SODIUM FERRIC GLUCONATE COMPLEX
     Indication: IRON DEFICIENCY
     Dosage: 4.64 MG, Q4W,THERAPY START DATE ASKU, THERAPY END DATE ASKU
     Route: 042
  45. SODIUM FERRIC GLUCONATE COMPLEX. [Suspect]
     Active Substance: SODIUM FERRIC GLUCONATE COMPLEX
     Dosage: THERAPY START DATE ASKU, THERAPY END DATE ASKU?, 125 MG, Q4W
     Route: 042
  46. LANTHANUM CARBONATE. [Suspect]
     Active Substance: LANTHANUM CARBONATE
     Indication: BLOOD PHOSPHORUS INCREASED
     Dosage: 500 MG, PRN,THERAPY START DATE ASKU, THERAPY END DATE ASKU
     Route: 048
  47. ARANESP [Suspect]
     Active Substance: DARBEPOETIN ALFA
     Indication: ANAEMIA
     Dosage: 0.714 UG, QOW (SOLUTION INTRAVENOUS),THERAPY START DATE ASKU, THERAPY END DATE ASKU
     Route: 042
  48. IPRATROPIUM [Suspect]
     Active Substance: IPRATROPIUM
     Indication: DYSPNOEA
     Route: 055
  49. UMECLIDINIUM BROMIDE\VILANTEROL TRIFENATATE [Suspect]
     Active Substance: UMECLIDINIUM BROMIDE\VILANTEROL TRIFENATATE
     Indication: DYSPNOEA
     Route: 048

REACTIONS (15)
  - Abdominal pain [Fatal]
  - Cardiogenic shock [Fatal]
  - Sepsis [Fatal]
  - Hyponatraemia [Fatal]
  - Constipation [Fatal]
  - Off label use [Fatal]
  - Ascites [Fatal]
  - General physical health deterioration [Fatal]
  - Abdominal distension [Fatal]
  - Appendicolith [Fatal]
  - Nausea [Fatal]
  - Stress [Fatal]
  - Vomiting [Fatal]
  - Multiple organ dysfunction syndrome [Fatal]
  - Appendicitis [Fatal]
